FAERS Safety Report 25734707 (Version 1)
Quarter: 2025Q3

REPORT INFORMATION
  Report Type: Spontaneous
  Country: US (occurrence: US)
  Receive Date: 20250828
  Receipt Date: 20250828
  Transmission Date: 20251021
  Serious: Yes (Hospitalization, Other)
  Sender: UNITED THERAPEUTICS
  Company Number: US-UNITED THERAPEUTICS-UNT-2025-023286

PATIENT
  Age: 65 Year
  Sex: Male

DRUGS (12)
  1. ORENITRAM [Suspect]
     Active Substance: TREPROSTINIL
     Indication: Pulmonary arterial hypertension
     Dosage: 1 MG, TID
  2. ORENITRAM [Suspect]
     Active Substance: TREPROSTINIL
     Dosage: 12 MG (2 TABLETS OF 5 MG AND 1 MG EACH), TID
  3. ORENITRAM [Suspect]
     Active Substance: TREPROSTINIL
  4. ORENITRAM [Suspect]
     Active Substance: TREPROSTINIL
     Indication: Pulmonary arterial hypertension
  5. ORENITRAM [Suspect]
     Active Substance: TREPROSTINIL
     Indication: Pulmonary arterial hypertension
  6. REMODULIN [Suspect]
     Active Substance: TREPROSTINIL
     Indication: Pulmonary arterial hypertension
  7. REMODULIN [Suspect]
     Active Substance: TREPROSTINIL
  8. REMODULIN [Suspect]
     Active Substance: TREPROSTINIL
  9. TRIAMCINOLONE ACETONIDE [Suspect]
     Active Substance: TRIAMCINOLONE ACETONIDE
     Indication: Infusion site pain
  10. AMBRISENTAN [Concomitant]
     Active Substance: AMBRISENTAN
     Indication: Product used for unknown indication
  11. SOTATERCEPT [Concomitant]
     Active Substance: SOTATERCEPT
     Indication: Product used for unknown indication
  12. ADEMPAS [Concomitant]
     Active Substance: RIOCIGUAT
     Indication: Product used for unknown indication

REACTIONS (4)
  - Pulmonary arterial hypertension [Unknown]
  - Pneumonia [Unknown]
  - Infusion site pain [Not Recovered/Not Resolved]
  - Therapy non-responder [Unknown]

NARRATIVE: CASE EVENT DATE: 20250701
